FAERS Safety Report 7689612-X (Version None)
Quarter: 2011Q3

REPORT INFORMATION
  Report Type: 
  Country: None (occurrence: None)
  Receive Date: 20110817
  Receipt Date: 20110814
  Transmission Date: 20111222
  Serious: Yes (Hospitalization, Other)
  Sender: FDA-Public Use
  Company Number: GB-PFIZER INC-2006077932

PATIENT
  Age: 72 Year
  Sex: Male
  Weight: 88 kg

DRUGS (8)
  1. ACETYLSALICYLIC ACID SRT [Concomitant]
     Dosage: 75 MG, UNK
     Route: 065
     Dates: start: 20030301
  2. CLOPIDOGREL BISULFATE [Concomitant]
     Dosage: 75 MG, UNK
     Route: 065
     Dates: start: 20030301
  3. HYDROCORTISONE [Suspect]
     Indication: ADRENAL DISORDER
  4. HYDROCORTISONE [Suspect]
     Indication: TUBERCULOSIS
     Dosage: 30 MG, 1X/DAY
     Route: 048
     Dates: start: 19760101
  5. HYDROCORTISONE [Suspect]
     Indication: CARDIAC DISORDER
  6. LIPITOR [Concomitant]
     Dosage: 40 MG, UNK
     Dates: start: 20030301
  7. RAMIPRIL [Concomitant]
     Route: 065
  8. FLUDROCORTISONE ACETATE [Concomitant]
     Dosage: UNK
     Dates: start: 19760701

REACTIONS (5)
  - HYPERGLYCAEMIA [None]
  - MALAISE [None]
  - BLOOD GLUCOSE INCREASED [None]
  - FOOD POISONING [None]
  - PYREXIA [None]
